FAERS Safety Report 23462993 (Version 1)
Quarter: 2024Q1

REPORT INFORMATION
  Report Type: Spontaneous
  Country: US (occurrence: US)
  Receive Date: 20240131
  Receipt Date: 20240131
  Transmission Date: 20240410
  Serious: No
  Sender: FDA-Public Use
  Company Number: US-PFIZER INC-2021581160

PATIENT
  Age: 86 Year
  Sex: Male

DRUGS (2)
  1. IBRANCE [Suspect]
     Active Substance: PALBOCICLIB
     Dosage: 100 MG
     Dates: start: 20170519
  2. ASPIRIN [Suspect]
     Active Substance: ASPIRIN
     Dosage: 81 MG

REACTIONS (1)
  - Epistaxis [Unknown]
